FAERS Safety Report 9150567 (Version 2)
Quarter: 2013Q1

REPORT INFORMATION
  Report Type: Report from Study
  Country: US (occurrence: US)
  Receive Date: 20130308
  Receipt Date: 20130325
  Transmission Date: 20140127
  Serious: Yes (Other)
  Sender: FDA-Public Use
  Company Number: US-US-EMD SERONO, INC.-7197343

PATIENT
  Sex: Male

DRUGS (3)
  1. REBIF [Suspect]
     Indication: MULTIPLE SCLEROSIS
     Route: 058
     Dates: start: 20130114, end: 201302
  2. REBIF [Suspect]
     Route: 058
     Dates: start: 201302
  3. VICODIN [Concomitant]
     Indication: MULTIPLE SCLEROSIS
     Dates: start: 2011

REACTIONS (10)
  - Physical assault [Unknown]
  - Nightmare [Unknown]
  - Suicidal ideation [Unknown]
  - Depression [Unknown]
  - Feeling abnormal [Unknown]
  - Abasia [Unknown]
  - Dyskinesia [Unknown]
  - Insomnia [Unknown]
  - Malaise [Unknown]
  - Pain [Not Recovered/Not Resolved]
